FAERS Safety Report 7460410-5 (Version None)
Quarter: 2011Q2

REPORT INFORMATION
  Report Type: 
  Country: None (occurrence: None)
  Receive Date: 20110505
  Receipt Date: 20110228
  Transmission Date: 20111010
  Serious: Yes (Hospitalization)
  Sender: FDA-Public Use
  Company Number: B0673834A

PATIENT
  Sex: Male

DRUGS (3)
  1. SEROQUEL [Concomitant]
     Route: 065
  2. LITHIONIT [Concomitant]
     Route: 065
  3. LAMICTAL [Suspect]
     Indication: BIPOLAR DISORDER
     Dosage: 200MG TWICE PER DAY
     Route: 065
     Dates: start: 20100825

REACTIONS (13)
  - DIPLOPIA [None]
  - HEADACHE [None]
  - SPEECH DISORDER [None]
  - ASTHENIA [None]
  - COORDINATION ABNORMAL [None]
  - ATAXIA [None]
  - CEREBROVASCULAR ACCIDENT [None]
  - DIZZINESS [None]
  - FEELING DRUNK [None]
  - NASOPHARYNGITIS [None]
  - SYNCOPE [None]
  - DYSARTHRIA [None]
  - NAUSEA [None]
